FAERS Safety Report 8942487 (Version 1)
Quarter: 2012Q4

REPORT INFORMATION
  Report Type: 
  Country: EC (occurrence: EC)
  Receive Date: 20121204
  Receipt Date: 20121204
  Transmission Date: 20130627
  Serious: Yes (Death)
  Sender: FDA-Public Use
  Company Number: PHHY2012EC110726

PATIENT
  Age: 77 Year
  Sex: Female

DRUGS (1)
  1. STALEVO [Suspect]
     Dosage: 100/25/200 mg
     Route: 048
     Dates: start: 20100506

REACTIONS (1)
  - Death [Fatal]
